FAERS Safety Report 7956513-9 (Version None)
Quarter: 2011Q4

REPORT INFORMATION
  Report Type: 
  Country: None (occurrence: None)
  Receive Date: 20111205
  Receipt Date: 20111128
  Transmission Date: 20120403
  Serious: No
  Sender: FDA-Public Use
  Company Number: US-PFIZER INC-2011290625

PATIENT
  Sex: Female
  Weight: 40.816 kg

DRUGS (3)
  1. PENICILLIN G POTASSIUM [Suspect]
  2. AUGMENTIN [Suspect]
  3. CIPRO [Suspect]

REACTIONS (1)
  - DRUG HYPERSENSITIVITY [None]
